FAERS Safety Report 18906633 (Version 1)
Quarter: 2021Q1

REPORT INFORMATION
  Report Type: Spontaneous
  Country: CN (occurrence: CN)
  Receive Date: 20210217
  Receipt Date: 20210217
  Transmission Date: 20210420
  Serious: Yes (Hospitalization)
  Sender: FDA-Public Use
  Company Number: CN-BAUSCH-BL-2020-039195

PATIENT
  Age: 79 Year
  Sex: Female
  Weight: 56 kg

DRUGS (9)
  1. ZOLPIDEM [Suspect]
     Active Substance: ZOLPIDEM TARTRATE
     Indication: INSOMNIA
     Dosage: AT BEDTIME, LONG?STANDING THERAPY
     Route: 065
     Dates: start: 20170915, end: 20170930
  2. ZOLPIDEM [Suspect]
     Active Substance: ZOLPIDEM TARTRATE
     Route: 065
     Dates: start: 20180623, end: 20180628
  3. KETOTIFEN [Suspect]
     Active Substance: KETOTIFEN
     Route: 065
     Dates: start: 20180509, end: 20180516
  4. KETOTIFEN [Suspect]
     Active Substance: KETOTIFEN
     Route: 065
     Dates: start: 20180516, end: 20180725
  5. KETOTIFEN [Suspect]
     Active Substance: KETOTIFEN
     Indication: COUGH
     Route: 065
     Dates: start: 20170921, end: 20170930
  6. ALPRAZOLAM. [Suspect]
     Active Substance: ALPRAZOLAM
     Indication: INSOMNIA
     Dosage: LONG?STANDING THERAPY, AT BEDTIME
     Route: 065
     Dates: start: 20170915, end: 20170930
  7. CLARITHROMYCIN. [Suspect]
     Active Substance: CLARITHROMYCIN
     Indication: SINUSITIS
     Route: 065
     Dates: start: 20170922, end: 20170930
  8. ALPRAZOLAM. [Suspect]
     Active Substance: ALPRAZOLAM
     Route: 065
     Dates: start: 20180424, end: 20180628
  9. ALPRAZOLAM. [Suspect]
     Active Substance: ALPRAZOLAM
     Route: 065
     Dates: start: 20180629, end: 20180725

REACTIONS (5)
  - Amnesia [Recovered/Resolved]
  - Muscular weakness [Recovered/Resolved]
  - Multiple drug therapy [Unknown]
  - Lethargy [Recovered/Resolved]
  - Toxicity to various agents [Recovered/Resolved]

NARRATIVE: CASE EVENT DATE: 201709
